FAERS Safety Report 5033823-9 (Version None)
Quarter: 2006Q2

REPORT INFORMATION
  Report Type: 
  Country: None (occurrence: None)
  Receive Date: 20060623
  Receipt Date: 20060613
  Transmission Date: 20061013
  Serious: Yes (Hospitalization)
  Sender: FDA-Public Use
  Company Number: FRWYE721013JUN06

PATIENT
  Age: 48 Year
  Sex: Male

DRUGS (4)
  1. ENBREL [Suspect]
     Indication: RHEUMATOID ARTHRITIS
     Route: 058
     Dates: start: 20040625, end: 20041118
  2. FOSAMAX [Suspect]
     Indication: OSTEOPOROSIS PROPHYLAXIS
     Route: 048
     Dates: end: 20041118
  3. CORTANCYL [Suspect]
     Indication: RHEUMATOID ARTHRITIS
     Route: 048
     Dates: start: 19970404
  4. OROCAL [Concomitant]
     Route: 048

REACTIONS (6)
  - CATHETER SITE INFECTION [None]
  - OESOPHAGEAL ADENOCARCINOMA [None]
  - OESOPHAGEAL DYSPLASIA [None]
  - POSTOPERATIVE ABSCESS [None]
  - RECTAL HAEMORRHAGE [None]
  - STAPHYLOCOCCAL BACTERAEMIA [None]
